FAERS Safety Report 8209565-5 (Version None)
Quarter: 2012Q1

REPORT INFORMATION
  Report Type: 
  Country: None (occurrence: None)
  Receive Date: 20120314
  Receipt Date: 20120229
  Transmission Date: 20120608
  Serious: Yes (Other)
  Sender: FDA-Public Use
  Company Number: PHHY2011JP91221

PATIENT
  Age: 50 Year
  Sex: Female

DRUGS (4)
  1. CYCLOSPORINE [Suspect]
     Indication: RENAL TRANSPLANT
     Dosage: UNK UKN, UNK
  2. METHYLPREDNISOLONE [Concomitant]
     Indication: RENAL TRANSPLANT
     Dosage: UNK UKN, UNK
  3. MIZORIBINE [Concomitant]
     Indication: RENAL TRANSPLANT
     Dosage: UNK UKN, UNK
  4. BASILIXIMAB [Suspect]
     Indication: RENAL TRANSPLANT
     Dosage: UNK UKN, UNK
     Route: 042

REACTIONS (7)
  - PAIN [None]
  - FEMORAL HERNIA, OBSTRUCTIVE [None]
  - GASTROINTESTINAL NECROSIS [None]
  - LOCAL SWELLING [None]
  - URETERAL NECROSIS [None]
  - ABDOMINAL HERNIA OBSTRUCTIVE [None]
  - HAEMORRHAGE [None]
